FAERS Safety Report 6967665-1 (Version None)
Quarter: 2010Q3

REPORT INFORMATION
  Report Type: 
  Country: None (occurrence: None)
  Receive Date: 20100907
  Receipt Date: 20100825
  Transmission Date: 20110219
  Serious: Yes (Death)
  Sender: FDA-Public Use
  Company Number: JP-PFIZER INC-2010084201

PATIENT
  Age: 96 Year
  Sex: Female

DRUGS (10)
  1. ZITHROMAC SR [Suspect]
     Indication: PNEUMONIA
     Dosage: 2 G, SINGLE
     Route: 048
     Dates: start: 20100616, end: 20100616
  2. VANCOMYCIN [Concomitant]
     Indication: GASTROENTERITIS STAPHYLOCOCCAL
  3. MUCOSTA [Concomitant]
  4. LEVOFLOXACIN [Concomitant]
     Indication: PNEUMONIA
     Dosage: UNK
     Route: 048
     Dates: start: 20100609, end: 20100614
  5. UNACYNE [Concomitant]
  6. MICAFUNGIN SODIUM [Concomitant]
  7. CIPROFLOXACIN HCL [Concomitant]
  8. BIOFERMIN R [Concomitant]
     Indication: GASTROINTESTINAL DISORDER
     Dosage: UNK
     Route: 048
     Dates: start: 20100619, end: 20100625
  9. NAUZELIN [Concomitant]
     Indication: ANTIEMETIC SUPPORTIVE CARE
     Dosage: UNK
     Route: 048
     Dates: start: 20100619, end: 20100625
  10. TAKEPRON [Concomitant]
     Dosage: UNK
     Route: 048
     Dates: start: 20100619, end: 20100625

REACTIONS (2)
  - DEATH [None]
  - DIARRHOEA [None]
